FAERS Safety Report 13987232 (Version 1)
Quarter: 2017Q3

REPORT INFORMATION
  Report Type: Report from Study
  Country: US (occurrence: US)
  Receive Date: 20170919
  Receipt Date: 20170919
  Transmission Date: 20171128
  Serious: Yes (Hospitalization, Other)
  Sender: FDA-Public Use
  Company Number: US-BAYER-2017-174532

PATIENT
  Sex: Female

DRUGS (1)
  1. GADAVIST [Suspect]
     Active Substance: GADOBUTROL
     Indication: SCAN WITH CONTRAST
     Dosage: UNK UNK, ONCE
     Dates: start: 20170330

REACTIONS (28)
  - Anaphylactic reaction [None]
  - Palpitations [None]
  - Cough [None]
  - Malaise [None]
  - Contrast media reaction [None]
  - Migraine [None]
  - Nausea [None]
  - Lethargy [None]
  - Dysphagia [None]
  - Skin hypertrophy [None]
  - Hemianaesthesia [None]
  - Tremor [None]
  - Headache [None]
  - Chest discomfort [None]
  - Paraesthesia [None]
  - Chills [None]
  - Rash papular [None]
  - Nontherapeutic agent urine positive [None]
  - Dyspepsia [None]
  - Vomiting [None]
  - Asthenia [None]
  - Ear pain [None]
  - Diarrhoea [None]
  - Decreased appetite [None]
  - Burning sensation [None]
  - Dyspnoea [None]
  - Chest pain [None]
  - Pyrexia [None]

NARRATIVE: CASE EVENT DATE: 2017
